FAERS Safety Report 5889557-1 (Version None)
Quarter: 2008Q3

REPORT INFORMATION
  Report Type: 
  Country: None (occurrence: None)
  Receive Date: 20080919
  Receipt Date: 20080915
  Transmission Date: 20090109
  Serious: Yes (Other)
  Sender: FDA-Public Use
  Company Number: A0747481A

PATIENT
  Age: 45 Year
  Sex: Female

DRUGS (5)
  1. LAMICTAL [Suspect]
     Dosage: 100MG PER DAY
     Route: 048
     Dates: start: 20080601
  2. KEPPRA [Suspect]
     Route: 048
     Dates: start: 20080501, end: 20080601
  3. LEVOXYL [Suspect]
     Dosage: 112MCG PER DAY
     Route: 048
     Dates: start: 19980101
  4. ADVAIR DISKUS 100/50 [Concomitant]
  5. FLONASE [Concomitant]

REACTIONS (9)
  - ANGER [None]
  - BALANCE DISORDER [None]
  - CONVULSION [None]
  - CRYING [None]
  - DRUG INEFFECTIVE [None]
  - FEELING ABNORMAL [None]
  - GAIT DISTURBANCE [None]
  - WEIGHT INCREASED [None]
  - WEIGHT LOSS POOR [None]
